FAERS Safety Report 12630027 (Version 1)
Quarter: 2016Q3

REPORT INFORMATION
  Report Type: Spontaneous
  Country: US (occurrence: US)
  Receive Date: 20160808
  Receipt Date: 20160808
  Transmission Date: 20161109
  Serious: No
  Sender: FDA-Public Use
  Company Number: US-JNJFOC-20160707584

PATIENT
  Sex: Female

DRUGS (1)
  1. OXYBUTYNIN CHLORIDE ER [Suspect]
     Active Substance: OXYBUTYNIN CHLORIDE
     Indication: NEUROGENIC BLADDER
     Route: 048

REACTIONS (3)
  - Adverse event [Recovered/Resolved]
  - Hallucination [Recovered/Resolved]
  - Psychotic disorder [Recovered/Resolved]
